FAERS Safety Report 14288202 (Version 1)
Quarter: 2017Q4

REPORT INFORMATION
  Report Type: Spontaneous
  Country: GB (occurrence: GB)
  Receive Date: 20171214
  Receipt Date: 20171214
  Transmission Date: 20180321
  Serious: Yes (Hospitalization)
  Sender: FDA-Public Use
  Company Number: GB-TEVA-2017-GB-833217

PATIENT
  Age: 47 Year
  Sex: Female
  Weight: 79.3 kg

DRUGS (19)
  1. VANCOMYCIN [Suspect]
     Active Substance: VANCOMYCIN
     Indication: STAPHYLOCOCCAL BACTERAEMIA
     Route: 042
     Dates: start: 20171106, end: 20171110
  2. CYCLIZINE [Concomitant]
     Active Substance: CYCLIZINE
  3. HUMULIN M3 [Concomitant]
     Active Substance: INSULIN HUMAN
  4. MIRTAZAPINE. [Concomitant]
     Active Substance: MIRTAZAPINE
  5. LITHIUM. [Concomitant]
     Active Substance: LITHIUM
  6. LACTULOSE. [Concomitant]
     Active Substance: LACTULOSE
  7. PARACETAMOL [Concomitant]
     Active Substance: ACETAMINOPHEN
  8. GENTAMICIN. [Concomitant]
     Active Substance: GENTAMICIN
  9. PREGABALIN. [Concomitant]
     Active Substance: PREGABALIN
  10. SIMVASTATIN. [Concomitant]
     Active Substance: SIMVASTATIN
  11. AZTREONAM. [Concomitant]
     Active Substance: AZTREONAM
  12. DALTEPARIN [Concomitant]
     Active Substance: DALTEPARIN
  13. CASSIA [Concomitant]
  14. ZOPICLONE [Concomitant]
     Active Substance: ZOPICLONE
  15. QUETIAPINE. [Concomitant]
     Active Substance: QUETIAPINE
  16. DIHYDROCODEINE [Concomitant]
     Active Substance: DIHYDROCODEINE
  17. METRONIDAZOLE. [Concomitant]
     Active Substance: METRONIDAZOLE
  18. COTRIMOXAZOLE [Concomitant]
     Active Substance: SULFAMETHOXAZOLE\TRIMETHOPRIM
  19. MORPHINE SULFATE. [Concomitant]
     Active Substance: MORPHINE SULFATE

REACTIONS (2)
  - Blister [Recovering/Resolving]
  - Oedema [Recovering/Resolving]

NARRATIVE: CASE EVENT DATE: 20171110
